FAERS Safety Report 20333934 (Version 1)
Quarter: 2022Q1

REPORT INFORMATION
  Report Type: Spontaneous
  Country: US (occurrence: US)
  Receive Date: 20220113
  Receipt Date: 20220113
  Transmission Date: 20220423
  Serious: No
  Sender: FDA-Public Use
  Company Number: US-EVOKE PHARMA, INC.-2021EVO000149

PATIENT

DRUGS (1)
  1. GIMOTI [Suspect]
     Active Substance: METOCLOPRAMIDE HYDROCHLORIDE
     Indication: Impaired gastric emptying
     Dosage: 15MG/70UL, QID
     Dates: start: 202108, end: 20211030

REACTIONS (3)
  - Myalgia [Not Recovered/Not Resolved]
  - Depression [Not Recovered/Not Resolved]
  - Fatigue [Not Recovered/Not Resolved]

NARRATIVE: CASE EVENT DATE: 20211101
